FAERS Safety Report 4293770-7 (Version None)
Quarter: 2004Q1

REPORT INFORMATION
  Report Type: 
  Country: None (occurrence: None)
  Receive Date: 20040210
  Receipt Date: 20040126
  Transmission Date: 20041129
  Serious: Yes (Death, Life-Threatening)
  Sender: FDA-Public Use
  Company Number: 2004IC000028

PATIENT
  Age: 63 Year
  Sex: Male

DRUGS (2)
  1. FLUOROURACIL [Suspect]
     Indication: COLON CANCER
     Dosage: 1300 MG; INTRAVENOUS
     Route: 042
     Dates: start: 20030602, end: 20030630
  2. LEUCOVORIN CALCIUM [Suspect]
     Indication: COLON CANCER
     Dosage: 350 MG; INTRAVENOUS DRIP
     Route: 041
     Dates: start: 20030602, end: 20030630

REACTIONS (16)
  - ABDOMINAL PAIN LOWER [None]
  - AZOTAEMIA [None]
  - DEPRESSED LEVEL OF CONSCIOUSNESS [None]
  - DIARRHOEA [None]
  - FALSE POSITIVE LABORATORY RESULT [None]
  - FATIGUE [None]
  - HEART RATE INCREASED [None]
  - HYPERGLYCAEMIA [None]
  - LEUKOPENIA [None]
  - METABOLIC ACIDOSIS [None]
  - MUCOSAL EROSION [None]
  - MULTI-ORGAN FAILURE [None]
  - OLIGURIA [None]
  - PYREXIA [None]
  - RESPIRATORY RATE INCREASED [None]
  - THROMBOCYTOPENIA [None]
